FAERS Safety Report 17528493 (Version 1)
Quarter: 2020Q1

REPORT INFORMATION
  Report Type: Spontaneous
  Country: ES (occurrence: ES)
  Receive Date: 20200312
  Receipt Date: 20200312
  Transmission Date: 20200409
  Serious: Yes (Life-Threatening, Hospitalization, Other)
  Sender: FDA-Public Use
  Company Number: ES-AUROBINDO-AUR-APL-2020-012101

PATIENT
  Age: 89 Year
  Sex: Male

DRUGS (6)
  1. SINTROM [Interacting]
     Active Substance: ACENOCOUMAROL
     Dosage: 12 MILLIGRAM, EVERY WEEK
     Route: 048
     Dates: start: 20150320, end: 20181219
  2. SINTROM [Interacting]
     Active Substance: ACENOCOUMAROL
     Dosage: 11 MILLIGRAM, EVERY WEEK
     Route: 048
     Dates: start: 20200205, end: 20200211
  3. CEFUROXIME FILM COATED TABLETS 500MG [Suspect]
     Active Substance: CEFUROXIME
     Indication: RESPIRATORY TRACT INFECTION
     Dosage: 500 MILLIGRAM, ONCE A DAY
     Route: 048
     Dates: start: 20200210, end: 20200216
  4. SINTROM [Interacting]
     Active Substance: ACENOCOUMAROL
     Dosage: 12.5 MILLIGRAM, EVERY WEEK
     Route: 048
     Dates: start: 20181220, end: 20200204
  5. SINTROM [Interacting]
     Active Substance: ACENOCOUMAROL
     Dosage: 9 MILLIGRAM, EVERY WEEK
     Route: 048
     Dates: start: 20200212, end: 20200216
  6. SINTROM [Interacting]
     Active Substance: ACENOCOUMAROL
     Indication: ATRIAL FIBRILLATION
     Dosage: 14 MILLIGRAM, EVERY WEEK
     Route: 048
     Dates: start: 20110914, end: 20150319

REACTIONS (2)
  - Hypocoagulable state [Recovering/Resolving]
  - Retroperitoneal haematoma [Unknown]

NARRATIVE: CASE EVENT DATE: 20200212
